FAERS Safety Report 15879834 (Version 1)
Quarter: 2019Q1

REPORT INFORMATION
  Report Type: Spontaneous
  Country: JP (occurrence: JP)
  Receive Date: 20190128
  Receipt Date: 20190128
  Transmission Date: 20190417
  Serious: Yes (Other)
  Sender: FDA-Public Use
  Company Number: JP-BRACCO-2019JP00118

PATIENT
  Age: 52 Year
  Sex: Male

DRUGS (3)
  1. CORTRIL [Concomitant]
     Active Substance: HYDROCORTISONE
     Indication: ADRENAL INSUFFICIENCY
     Route: 048
  2. THYRADIN-S [Concomitant]
     Active Substance: LEVOTHYROXINE
     Dosage: 125 ?G
     Route: 048
  3. PROHANCE [Suspect]
     Active Substance: GADOTERIDOL
     Indication: NUCLEAR MAGNETIC RESONANCE IMAGING
     Dosage: 17 ML, SINGLE
     Route: 042
     Dates: start: 20190108, end: 20190108

REACTIONS (9)
  - Cold sweat [Unknown]
  - Blood pressure increased [Recovering/Resolving]
  - Altered state of consciousness [Recovered/Resolved]
  - Blood pressure decreased [Recovering/Resolving]
  - Neurologic neglect syndrome [Unknown]
  - Hypovolaemic shock [Unknown]
  - Gaze palsy [Unknown]
  - Presyncope [Unknown]
  - Dizziness [Unknown]

NARRATIVE: CASE EVENT DATE: 20190108
